FAERS Safety Report 11105113 (Version 1)
Quarter: 2015Q2

REPORT INFORMATION
  Report Type: Spontaneous
  Country: US (occurrence: US)
  Receive Date: 20150511
  Receipt Date: 20150511
  Transmission Date: 20150821
  Serious: Yes (Other)
  Sender: FDA-Public Use
  Company Number: US-GLAXOSMITHKLINE-US2015060614

PATIENT
  Sex: Male

DRUGS (1)
  1. FLONASE [Suspect]
     Active Substance: FLUTICASONE PROPIONATE
     Indication: RHINITIS
     Dosage: 2 SPRAYS EACH NOSTRIL, BID
     Route: 045

REACTIONS (5)
  - Pollakiuria [Unknown]
  - Adrenal insufficiency [Unknown]
  - Fatigue [Unknown]
  - Rectal neoplasm [Unknown]
  - Overdose [Unknown]
